FAERS Safety Report 13736795 (Version 1)
Quarter: 2017Q3

REPORT INFORMATION
  Report Type: Spontaneous
  Country: US (occurrence: US)
  Receive Date: 20170710
  Receipt Date: 20170710
  Transmission Date: 20171127
  Serious: No
  Sender: FDA-Public Use
  Company Number: US-009507513-1706USA010757

PATIENT

DRUGS (1)
  1. INVANZ [Suspect]
     Active Substance: ERTAPENEM SODIUM
     Dosage: UNK
     Route: 030
     Dates: start: 20170621

REACTIONS (2)
  - Vomiting [Unknown]
  - Adverse event [Unknown]

NARRATIVE: CASE EVENT DATE: 20170621
